FAERS Safety Report 8458993-1 (Version None)
Quarter: 2012Q2

REPORT INFORMATION
  Report Type: 
  Country: None (occurrence: None)
  Receive Date: 20120622
  Receipt Date: 20120612
  Transmission Date: 20120825
  Serious: Yes (Life-Threatening, Hospitalization)
  Sender: FDA-Public Use
  Company Number: IT-ROCHE-1074696

PATIENT
  Sex: Male

DRUGS (8)
  1. LEVOFLOXACIN [Suspect]
     Indication: PYREXIA
     Route: 048
     Dates: start: 20120509, end: 20120519
  2. ASPIRIN [Suspect]
     Indication: PRODUCT USED FOR UNKNOWN INDICATION
     Route: 048
     Dates: start: 20120101, end: 20120519
  3. LEUCOVORIN CALCIUM [Concomitant]
     Dosage: 175 MG SOLUTION
     Route: 042
     Dates: start: 20120411, end: 20120411
  4. RAMIPRIL [Suspect]
     Indication: HYPERTENSION
     Route: 048
     Dates: start: 20120101, end: 20120509
  5. FLUOROURACIL [Concomitant]
     Dosage: 500 MG/10ML
     Route: 042
     Dates: start: 20120411, end: 20120411
  6. KETOROLAC TROMETHAMINE [Suspect]
     Indication: PRODUCT USED FOR UNKNOWN INDICATION
     Dosage: STRENGTH 30MG/ML
     Route: 030
     Dates: start: 20120510, end: 20120510
  7. ELOXATIN [Suspect]
     Indication: COLON NEOPLASM
     Route: 042
     Dates: start: 20120509, end: 20120509
  8. NEXIUM [Concomitant]

REACTIONS (5)
  - RENAL FAILURE ACUTE [None]
  - METABOLIC ACIDOSIS [None]
  - HYPERNATRAEMIA [None]
  - BLOOD POTASSIUM INCREASED [None]
  - INTRAVASCULAR HAEMOLYSIS [None]
